FAERS Safety Report 7774084-7 (Version None)
Quarter: 2011Q3

REPORT INFORMATION
  Report Type: 
  Country: None (occurrence: None)
  Receive Date: 20110923
  Receipt Date: 20110920
  Transmission Date: 20111222
  Serious: No
  Sender: FDA-Public Use
  Company Number: US-PFIZER INC-2011223366

PATIENT
  Sex: Female
  Weight: 59.864 kg

DRUGS (1)
  1. DEPO-PROVERA [Suspect]
     Indication: CONTRACEPTION
     Dosage: UNK, EVERY 3 MONTHS
     Route: 030
     Dates: start: 20110301, end: 20110920

REACTIONS (5)
  - WEIGHT INCREASED [None]
  - IRRITABILITY [None]
  - CRYING [None]
  - EMOTIONAL DISORDER [None]
  - ALOPECIA [None]
